FAERS Safety Report 20859353 (Version 1)
Quarter: 2022Q2

REPORT INFORMATION
  Report Type: Report from Study
  Country: CO (occurrence: CO)
  Receive Date: 20220523
  Receipt Date: 20220523
  Transmission Date: 20220720
  Serious: Yes (Other)
  Sender: FDA-Public Use
  Company Number: CO-ABBVIE-20K-036-3506969-00

PATIENT
  Age: 46 Year
  Sex: Female

DRUGS (15)
  1. HUMIRA [Suspect]
     Active Substance: ADALIMUMAB
     Indication: Ankylosing spondylitis
     Route: 058
     Dates: start: 20151105
  2. HUMIRA [Suspect]
     Active Substance: ADALIMUMAB
     Route: 058
     Dates: start: 20220127
  3. HUMIRA [Suspect]
     Active Substance: ADALIMUMAB
     Indication: Ankylosing spondylitis
     Route: 058
  4. HUMIRA [Suspect]
     Active Substance: ADALIMUMAB
     Indication: Colitis ulcerative
     Route: 058
     Dates: end: 20210409
  5. HUMIRA [Suspect]
     Active Substance: ADALIMUMAB
     Indication: Psoriasis
     Route: 058
     Dates: start: 2021, end: 2021
  6. HUMIRA [Suspect]
     Active Substance: ADALIMUMAB
     Indication: Crohn^s disease
     Route: 058
     Dates: start: 2021, end: 2021
  7. HUMIRA [Suspect]
     Active Substance: ADALIMUMAB
     Route: 058
     Dates: start: 2021, end: 20210701
  8. HUMIRA [Suspect]
     Active Substance: ADALIMUMAB
     Route: 058
     Dates: start: 2021, end: 2021
  9. HUMIRA [Suspect]
     Active Substance: ADALIMUMAB
     Route: 058
     Dates: start: 2021, end: 20211227
  10. HUMIRA [Suspect]
     Active Substance: ADALIMUMAB
     Route: 058
  11. ESOMEPRAZOLE [Suspect]
     Active Substance: ESOMEPRAZOLE
     Indication: Product used for unknown indication
     Route: 065
     Dates: end: 2021
  12. LORATADINE [Suspect]
     Active Substance: LORATADINE
     Indication: Product used for unknown indication
     Route: 065
  13. DESLORATADINE [Suspect]
     Active Substance: DESLORATADINE
     Indication: Product used for unknown indication
     Route: 065
  14. COVID-19 VACCINE [Concomitant]
     Indication: COVID-19 immunisation
     Route: 030
     Dates: start: 20210622, end: 20210622
  15. COVID-19 VACCINE [Concomitant]
     Route: 030
     Dates: start: 20210701, end: 20210701

REACTIONS (60)
  - Sacroiliitis [Not Recovered/Not Resolved]
  - Epistaxis [Recovering/Resolving]
  - Nasal injury [Not Recovered/Not Resolved]
  - Nasal ulcer [Recovering/Resolving]
  - Atopy [Recovering/Resolving]
  - Asthenia [Recovering/Resolving]
  - Drug ineffective [Unknown]
  - Tooth disorder [Not Recovered/Not Resolved]
  - Tendonitis [Recovered/Resolved]
  - Papule [Unknown]
  - Skin plaque [Recovered/Resolved]
  - Fear of injection [Unknown]
  - Faecal calprotectin abnormal [Not Recovered/Not Resolved]
  - Joint swelling [Recovering/Resolving]
  - Immunisation reaction [Recovering/Resolving]
  - Tendon pain [Recovering/Resolving]
  - Drug hypersensitivity [Recovering/Resolving]
  - Pruritus allergic [Recovering/Resolving]
  - Insomnia [Recovered/Resolved]
  - Inflammatory bowel disease [Not Recovered/Not Resolved]
  - Coccydynia [Not Recovered/Not Resolved]
  - Nasal inflammation [Recovering/Resolving]
  - Cough [Recovered/Resolved]
  - Dental caries [Recovering/Resolving]
  - Arthritis [Recovering/Resolving]
  - Arthritis [Not Recovered/Not Resolved]
  - Tooth fracture [Recovering/Resolving]
  - Rhinitis [Recovered/Resolved]
  - Headache [Recovering/Resolving]
  - Rhinitis [Recovered/Resolved]
  - Laryngitis [Recovered/Resolved]
  - Dyspnoea [Recovering/Resolving]
  - Sinusitis [Recovering/Resolving]
  - Rhinitis [Recovering/Resolving]
  - Hypersensitivity [Recovering/Resolving]
  - Pain [Recovering/Resolving]
  - Pneumonia [Not Recovered/Not Resolved]
  - Laryngitis [Not Recovered/Not Resolved]
  - Tooth infection [Recovering/Resolving]
  - Pulpitis dental [Recovering/Resolving]
  - Pain in extremity [Unknown]
  - Discomfort [Recovered/Resolved]
  - Pain [Recovering/Resolving]
  - Toothache [Recovered/Resolved]
  - Ear pain [Recovering/Resolving]
  - Ear infection [Not Recovered/Not Resolved]
  - Dental discomfort [Recovered/Resolved]
  - Inflammation [Recovered/Resolved]
  - Hyperaesthesia teeth [Recovered/Resolved]
  - Discomfort [Recovered/Resolved]
  - Diarrhoea [Recovered/Resolved]
  - Viral infection [Not Recovered/Not Resolved]
  - Suspected COVID-19 [Not Recovered/Not Resolved]
  - Diarrhoea [Not Recovered/Not Resolved]
  - Aphonia [Recovering/Resolving]
  - Abdominal pain [Recovered/Resolved]
  - Gastrointestinal inflammation [Recovered/Resolved]
  - Abnormal faeces [Recovering/Resolving]
  - Crohn^s disease [Recovering/Resolving]
  - Diarrhoea [Recovered/Resolved]

NARRATIVE: CASE EVENT DATE: 20190101
